FAERS Safety Report 8180971-0 (Version None)
Quarter: 2012Q1

REPORT INFORMATION
  Report Type: 
  Country: None (occurrence: None)
  Receive Date: 20120302
  Receipt Date: 20120224
  Transmission Date: 20120608
  Serious: Yes (Hospitalization)
  Sender: FDA-Public Use
  Company Number: US-BAYER-2011-032020

PATIENT
  Age: 42 Year
  Sex: Female
  Weight: 91 kg

DRUGS (14)
  1. CYTOXAN [Concomitant]
     Route: 048
  2. NORVASC [Concomitant]
     Dosage: 5 MG, QD
  3. TOPROL-XL [Concomitant]
     Dosage: 50 MG, QD
  4. VITAMIN D [Concomitant]
  5. NSAID'S [Concomitant]
     Dosage: UNK
     Dates: end: 20080101
  6. YASMIN [Suspect]
     Dosage: UNK
     Dates: start: 20070401, end: 20071201
  7. SOLU-MEDROL [Concomitant]
  8. RENAGEL [Concomitant]
     Dosage: 800 MG, TID
  9. RENAL CAPS [Concomitant]
  10. PROVERA [Concomitant]
     Dosage: UNK
     Dates: start: 20080102, end: 20080119
  11. ERGOCALCIFEROL [Concomitant]
     Dosage: 50000 U, Q1MON
  12. COLACE [Concomitant]
     Dosage: 100 MG, QD
  13. PERCOCET [Concomitant]
     Indication: CONSTIPATION
     Dosage: UNK, PRN
  14. EPO [Concomitant]
     Dosage: 20000 U, UNK

REACTIONS (1)
  - DEEP VEIN THROMBOSIS [None]
